FAERS Safety Report 19847682 (Version 1)
Quarter: 2021Q3

REPORT INFORMATION
  Report Type: Report from Study
  Country: TW (occurrence: TW)
  Receive Date: 20210917
  Receipt Date: 20210917
  Transmission Date: 20211014
  Serious: Yes (Hospitalization)
  Sender: FDA-Public Use
  Company Number: TW-SERVIER-S21010017

PATIENT

DRUGS (21)
  1. IVOSIDENIB [Suspect]
     Active Substance: IVOSIDENIB
     Indication: ACUTE MYELOID LEUKAEMIA
     Dosage: 500 MG, QD
     Route: 048
     Dates: start: 20200226
  2. VIDAZA [Suspect]
     Active Substance: AZACITIDINE
     Dosage: 112 MG, QD
     Route: 058
     Dates: start: 20200422, end: 20200428
  3. VIDAZA [Suspect]
     Active Substance: AZACITIDINE
     Indication: ACUTE MYELOID LEUKAEMIA
     Dosage: 120 MG, QD
     Route: 058
     Dates: start: 20200226, end: 20200303
  4. VIDAZA [Suspect]
     Active Substance: AZACITIDINE
     Dosage: 110 MG, QD
     Route: 058
     Dates: start: 20200729, end: 20200804
  5. VIDAZA [Suspect]
     Active Substance: AZACITIDINE
     Dosage: 116 MG, QD
     Route: 058
     Dates: start: 20200325, end: 20200331
  6. VIDAZA [Suspect]
     Active Substance: AZACITIDINE
     Dosage: 122 MG, QD
     Route: 058
     Dates: start: 20210707, end: 20210713
  7. TN UNSPECIFIED [Concomitant]
     Indication: TYPE 2 DIABETES MELLITUS
     Dosage: 1 MG, QD
     Route: 048
     Dates: start: 20200506
  8. TN UNSPECIFIED [Concomitant]
     Indication: PROPHYLAXIS
     Dosage: 40 MG, QD
     Route: 048
     Dates: start: 20200222
  9. TN UNSPECIFIED [Concomitant]
     Indication: TYPE 2 DIABETES MELLITUS
     Dosage: 5 MG, QD
     Route: 048
     Dates: start: 20200410
  10. VIDAZA [Suspect]
     Active Substance: AZACITIDINE
     Dosage: 114 MG, QD
     Route: 058
     Dates: start: 20200923, end: 20200929
  11. VIDAZA [Suspect]
     Active Substance: AZACITIDINE
     Dosage: 112 MG, QD
     Route: 058
     Dates: start: 20200826, end: 20200901
  12. VIDAZA [Suspect]
     Active Substance: AZACITIDINE
     Dosage: 116 MG, QD
     Route: 058
     Dates: start: 20201021, end: 20201027
  13. TN UNSPECIFIED [Concomitant]
     Indication: INTERSTITIAL LUNG DISEASE
     Dosage: 100 MG, TID
     Route: 048
     Dates: start: 20200611
  14. VIDAZA [Suspect]
     Active Substance: AZACITIDINE
     Dosage: 120 MG, QD
     Route: 058
     Dates: start: 20201216, end: 20210119
  15. VIDAZA [Suspect]
     Active Substance: AZACITIDINE
     Dosage: 122 MG, QD
     Route: 058
     Dates: start: 20210217, end: 20210223
  16. VIDAZA [Suspect]
     Active Substance: AZACITIDINE
     Dosage: 124 MG, QD
     Route: 058
     Dates: start: 20210317, end: 20210615
  17. VIDAZA [Suspect]
     Active Substance: AZACITIDINE
     Dosage: 124 MG, QD
     Route: 058
     Dates: start: 20210804
  18. TN UNSPECIFIED [Concomitant]
     Indication: GASTROINTESTINAL ULCER
  19. TN UNSPECIFIED [Concomitant]
     Indication: INSOMNIA
     Dosage: 0.5 MG, HS
     Route: 048
     Dates: start: 20210316
  20. VIDAZA [Suspect]
     Active Substance: AZACITIDINE
     Dosage: 108 MG, QD
     Route: 058
     Dates: start: 20200520, end: 20200707
  21. VIDAZA [Suspect]
     Active Substance: AZACITIDINE
     Dosage: 118 MG, QD
     Route: 058
     Dates: start: 20201118, end: 20201124

REACTIONS (1)
  - Urinary tract infection [Recovered/Resolved]

NARRATIVE: CASE EVENT DATE: 20210907
